FAERS Safety Report 10221482 (Version 1)
Quarter: 2014Q2

REPORT INFORMATION
  Report Type: Spontaneous
  Country: US (occurrence: None)
  Receive Date: 20140605
  Receipt Date: 20140605
  Transmission Date: 20141212
  Serious: Yes (Life-Threatening, Hospitalization)
  Sender: FDA-Public Use
  Company Number: None

PATIENT
  Age: 59 Year
  Sex: Male
  Weight: 86.2 kg

DRUGS (2)
  1. PANTOPRAZOLE INJ. ( PROTONIX) [Suspect]
     Indication: STRESS ULCER
     Route: 042
     Dates: start: 20140525, end: 20140527
  2. PANTOPRAZOLE INJ. ( PROTONIX) [Suspect]
     Indication: PROPHYLAXIS
     Route: 042
     Dates: start: 20140525, end: 20140527

REACTIONS (4)
  - Cardiac arrest [None]
  - Angioedema [None]
  - Upper airway obstruction [None]
  - Respiratory acidosis [None]
